FAERS Safety Report 7489007-8 (Version None)
Quarter: 2011Q2

REPORT INFORMATION
  Report Type: 
  Country: None (occurrence: None)
  Receive Date: 20110518
  Receipt Date: 20110516
  Transmission Date: 20111010
  Serious: No
  Sender: FDA-Public Use
  Company Number: US-TEVA-281862USA

PATIENT
  Sex: Female

DRUGS (7)
  1. LEVOTHYROXINE SODIUM [Concomitant]
  2. PROAIR HFA [Suspect]
     Route: 055
     Dates: start: 20110514
  3. OMEPRAZOLE [Concomitant]
  4. METFORMIN HCL [Concomitant]
  5. HYZAAR [Concomitant]
  6. SERTRALINE HYDROCHLORIDE [Concomitant]
  7. GABAPENTIN [Concomitant]

REACTIONS (1)
  - DRUG INEFFECTIVE [None]
